FAERS Safety Report 16644428 (Version 2)
Quarter: 2019Q3

REPORT INFORMATION
  Report Type: Spontaneous
  Country: US (occurrence: US)
  Receive Date: 20190729
  Receipt Date: 20190731
  Transmission Date: 20191004
  Serious: No
  Sender: FDA-Public Use
  Company Number: US-009507513-1907USA015001

PATIENT

DRUGS (3)
  1. DIFLUCAN [Concomitant]
     Active Substance: FLUCONAZOLE
     Dosage: 1 TAB BY MOUTH NOW; MAY REPEAT IN 3 DAYS IF NEEDED
     Route: 048
  2. HYDROXYZINE HYDROCHLORIDE. [Concomitant]
     Active Substance: HYDROXYZINE HYDROCHLORIDE
     Dosage: 1-2 PO Q6 HRS PRN ITCHING, NERVES, NAUSEA OR INSOMNIA
     Route: 048
  3. PRINIVIL [Suspect]
     Active Substance: LISINOPRIL
     Route: 048

REACTIONS (2)
  - Cough [Unknown]
  - Hypersensitivity [Unknown]
